FAERS Safety Report 20152759 (Version 1)
Quarter: 2021Q4

REPORT INFORMATION
  Report Type: Spontaneous
  Country: US (occurrence: None)
  Receive Date: 20211206
  Receipt Date: 20211206
  Transmission Date: 20220303
  Serious: No
  Sender: FDA-Public Use
  Company Number: None

PATIENT
  Age: 60 Year
  Sex: Female

DRUGS (5)
  1. ADVAIR DISKUS [Suspect]
     Active Substance: FLUTICASONE PROPIONATE\SALMETEROL XINAFOATE
     Indication: Asthma
     Dosage: OTHER STRENGTH : MCG;?FREQUENCY : TWICE A DAY;?
     Route: 048
     Dates: start: 20211122, end: 20211129
  2. ADVAIR DISKUS [Suspect]
     Active Substance: FLUTICASONE PROPIONATE\SALMETEROL XINAFOATE
     Indication: Asthma
     Dosage: OTHER STRENGTH : MCG;?FREQUENCY : TWICE A DAY;?
     Route: 048
     Dates: start: 20211130, end: 20211130
  3. PROAIR HFA [Concomitant]
     Active Substance: ALBUTEROL SULFATE
  4. VENTOLIN [Concomitant]
     Active Substance: ALBUTEROL SULFATE
  5. PROTONIX [Concomitant]
     Active Substance: PANTOPRAZOLE SODIUM

REACTIONS (9)
  - Burn oesophageal [None]
  - Taste disorder [None]
  - Dizziness [None]
  - Anxiety [None]
  - Insomnia [None]
  - Oral mucosal blistering [None]
  - Arthralgia [None]
  - Arthralgia [None]
  - Product substitution issue [None]

NARRATIVE: CASE EVENT DATE: 20211122
